FAERS Safety Report 24010604 (Version 3)
Quarter: 2024Q3

REPORT INFORMATION
  Report Type: Spontaneous
  Country: US (occurrence: US)
  Receive Date: 20240625
  Receipt Date: 20240807
  Transmission Date: 20241017
  Serious: Yes (Other)
  Sender: PFIZER
  Company Number: US-PFIZER INC-PV202400082510

PATIENT
  Age: 75 Year
  Sex: Male

DRUGS (1)
  1. INLYTA [Suspect]
     Active Substance: AXITINIB
     Dosage: UNK

REACTIONS (7)
  - Hypertension [Unknown]
  - Dysphonia [Unknown]
  - Speech disorder [Unknown]
  - Fatigue [Not Recovered/Not Resolved]
  - Arthralgia [Unknown]
  - Aphonia [Unknown]
  - Gait disturbance [Unknown]
